FAERS Safety Report 5952067-7 (Version None)
Quarter: 2008Q4

REPORT INFORMATION
  Report Type: 
  Country: None (occurrence: None)
  Receive Date: 20081113
  Receipt Date: 20080215
  Transmission Date: 20090506
  Serious: No
  Sender: FDA-Public Use
  Company Number: A0709983A

PATIENT
  Sex: Female

DRUGS (6)
  1. COREG [Suspect]
     Indication: HYPERTENSION
     Dosage: 25MG TWICE PER DAY
     Route: 048
     Dates: start: 20061101, end: 20061101
  2. PREVACID [Concomitant]
  3. LOTREL [Concomitant]
  4. GEMFIBROZIL [Concomitant]
  5. GABITRIL [Concomitant]
  6. CRESTOR [Concomitant]

REACTIONS (2)
  - DIZZINESS [None]
  - METAMORPHOPSIA [None]
